FAERS Safety Report 6526934-X (Version None)
Quarter: 2010Q1

REPORT INFORMATION
  Report Type: 
  Country: None (occurrence: None)
  Receive Date: 20100104
  Receipt Date: 20100104
  Transmission Date: 20100710
  Serious: Yes (Other)
  Sender: FDA-Public Use
  Company Number: None

PATIENT
  Sex: Female
  Weight: 61.2356 kg

DRUGS (1)
  1. ACTONEL [Suspect]
     Indication: OSTEOPOROSIS
     Dosage: 75MG 1X A MONTH THRU MEDCO (1ST OF MONTH)

REACTIONS (6)
  - ARTHRALGIA [None]
  - CHILLS [None]
  - DIARRHOEA [None]
  - FATIGUE [None]
  - PYREXIA [None]
  - VOMITING [None]
